FAERS Safety Report 6940589-1 (Version None)
Quarter: 2010Q3

REPORT INFORMATION
  Report Type: 
  Country: None (occurrence: None)
  Receive Date: 20100825
  Receipt Date: 20100823
  Transmission Date: 20110219
  Serious: Yes (Death, Hospitalization)
  Sender: FDA-Public Use
  Company Number: FR-WYE-H16854610

PATIENT
  Age: 66 Year
  Sex: Female

DRUGS (6)
  1. CORDARONE [Suspect]
     Indication: ATRIAL FIBRILLATION
     Dosage: UNSPECIFIED
     Route: 048
     Dates: start: 20051101
  2. CORDARONE [Suspect]
     Indication: ARRHYTHMIA
  3. PNEUMOCOCCAL VACCINE [Concomitant]
  4. INFLUENZA VIRUS VACCINE POLYVALENT [Concomitant]
  5. MABTHERA [Suspect]
     Indication: RHEUMATOID ARTHRITIS
     Dosage: 1 G IV BOLUS ON 12-NOV-2005, 29-NOV-2005, 13-DEC-2005, 12-FEB-2008, 12-NOV-2009, 26-NOV-2009
     Route: 042
     Dates: start: 20051112, end: 20091126
  6. NOVATREX [Suspect]
     Indication: RHEUMATOID ARTHRITIS
     Dosage: 2.5 MG
     Route: 048
     Dates: start: 20050101

REACTIONS (1)
  - PNEUMONIA [None]
